FAERS Safety Report 10520089 (Version 1)
Quarter: 2014Q4

REPORT INFORMATION
  Report Type: Spontaneous
  Country: US (occurrence: US)
  Receive Date: 20141015
  Receipt Date: 20141015
  Transmission Date: 20150528
  Serious: Yes (Hospitalization, Other)
  Sender: FDA-Public Use
  Company Number: US-ABBVIE-14P-163-1294740-00

PATIENT
  Age: 50 Year
  Sex: Male

DRUGS (2)
  1. DEPO-TESTOSTERONE [Concomitant]
     Active Substance: TESTOSTERONE CYPIONATE
     Indication: BLOOD TESTOSTERONE DECREASED
     Dosage: AS PRESCRIBED BY HIS DOCTOR
  2. ANDROGEL [Suspect]
     Active Substance: TESTOSTERONE
     Indication: BLOOD TESTOSTERONE DECREASED
     Dosage: AS PRESCRIBED BY HIS DOCTOR
     Route: 065

REACTIONS (10)
  - Injury [Unknown]
  - Deep vein thrombosis [Unknown]
  - Lung disorder [Unknown]
  - Social problem [Unknown]
  - Fear [Unknown]
  - Pain [Unknown]
  - Anhedonia [Unknown]
  - Economic problem [Unknown]
  - Pulmonary embolism [Unknown]
  - Anxiety [Unknown]
